FAERS Safety Report 8895373 (Version 4)
Quarter: 2013Q1

REPORT INFORMATION
  Report Type: Spontaneous
  Country: US (occurrence: US)
  Receive Date: 20121108
  Receipt Date: 20130226
  Transmission Date: 20140127
  Serious: Yes (Death, Hospitalization, Other)
  Sender: FDA-Public Use
  Company Number: US-BAXTER-2012BAX022315

PATIENT
  Age: 69 Year
  Sex: Male

DRUGS (2)
  1. DIANEAL LOW CALCIUM [Suspect]
     Indication: PERITONEAL DIALYSIS
     Route: 033
  2. DIANEAL LOW CALCIUM [Suspect]
     Indication: PERITONEAL DIALYSIS
     Route: 033

REACTIONS (4)
  - Cardiac failure [Fatal]
  - Cardio-respiratory arrest [Not Recovered/Not Resolved]
  - Appendicitis perforated [Not Recovered/Not Resolved]
  - Cardiac disorder [Not Recovered/Not Resolved]
